FAERS Safety Report 24241124 (Version 1)
Quarter: 2024Q3

REPORT INFORMATION
  Report Type: Spontaneous
  Country: JP (occurrence: JP)
  Receive Date: 20240823
  Receipt Date: 20240823
  Transmission Date: 20241017
  Serious: Yes (Other)
  Sender: JOHNSON AND JOHNSON
  Company Number: JP-MTPC-MTPC2024-0017600

PATIENT
  Age: 3 Decade
  Sex: Female

DRUGS (4)
  1. REMICADE [Suspect]
     Active Substance: INFLIXIMAB
     Indication: Crohn^s disease
     Route: 041
  2. STELARA [Suspect]
     Active Substance: USTEKINUMAB
     Indication: Crohn^s disease
     Route: 041
  3. BUDESONIDE [Concomitant]
     Active Substance: BUDESONIDE
     Route: 065
  4. RISANKIZUMAB [Concomitant]
     Active Substance: RISANKIZUMAB
     Indication: Crohn^s disease
     Route: 065

REACTIONS (8)
  - Gastrointestinal wall thickening [Unknown]
  - Fat tissue increased [Unknown]
  - Gastrointestinal disorder [Unknown]
  - Large intestinal ulcer [Unknown]
  - Cutaneous symptom [Recovered/Resolved]
  - Paradoxical drug reaction [Unknown]
  - Abdominal pain [Unknown]
  - Inflammation [Unknown]
